FAERS Safety Report 15936443 (Version 2)
Quarter: 2019Q1

REPORT INFORMATION
  Report Type: Report from Study
  Country: NL (occurrence: NL)
  Receive Date: 20190208
  Receipt Date: 20190308
  Transmission Date: 20190417
  Serious: Yes (Hospitalization)
  Sender: FDA-Public Use
  Company Number: NL-ROCHE-2260769

PATIENT
  Age: 59 Year
  Sex: Female
  Weight: 65.7 kg

DRUGS (3)
  1. BLINDED ASPIRIN [Suspect]
     Active Substance: ASPIRIN
     Indication: FALLOPIAN TUBE CANCER
     Dosage: DATE OF  MOST RECENT DOSE OF BLINDED ASPIRIN PRIOR TO SAE ONSET: 20/JAN/2019.
     Route: 048
     Dates: start: 20181212
  2. ATEZOLIZUMAB. [Suspect]
     Active Substance: ATEZOLIZUMAB
     Indication: FALLOPIAN TUBE CANCER
     Dosage: DATE OF MOST RECENT DOSE OF ATEZOLIZUMAB PRIOR TO SAE ONSET: 31/DEC/2018
     Route: 042
     Dates: start: 20181212
  3. BEVACIZUMAB. [Suspect]
     Active Substance: BEVACIZUMAB
     Indication: FALLOPIAN TUBE CANCER
     Dosage: DATE OF MOST RECENT DOSE OF BEVACIZUMAB PRIOR TO SAE ONSET: 31/DEC/2018
     Route: 042
     Dates: start: 20181212

REACTIONS (1)
  - Ileal perforation [Recovered/Resolved]

NARRATIVE: CASE EVENT DATE: 20190120
